FAERS Safety Report 20406376 (Version 1)
Quarter: 2022Q1

REPORT INFORMATION
  Report Type: Spontaneous
  Country: US (occurrence: US)
  Receive Date: 20220131
  Receipt Date: 20220131
  Transmission Date: 20220424
  Serious: No
  Sender: FDA-Public Use
  Company Number: US-BAYER-2022A015759

PATIENT
  Age: 63 Year
  Sex: Female

DRUGS (2)
  1. MIRENA [Suspect]
     Active Substance: LEVONORGESTREL
     Indication: Contraception
     Dosage: 20?G/DAY
     Route: 015
     Dates: start: 201907
  2. MIRENA [Suspect]
     Active Substance: LEVONORGESTREL
     Indication: Crohn^s disease

REACTIONS (2)
  - Blister [None]
  - Eye irritation [None]
